FAERS Safety Report 6317202-X (Version None)
Quarter: 2009Q3

REPORT INFORMATION
  Report Type: 
  Country: None (occurrence: None)
  Receive Date: 20090820
  Receipt Date: 20090812
  Transmission Date: 20100115
  Serious: Yes (Hospitalization)
  Sender: FDA-Public Use
  Company Number: GB-AMGEN-US226369

PATIENT
  Sex: Female
  Weight: 61 kg

DRUGS (9)
  1. ENBREL [Suspect]
     Indication: RHEUMATOID ARTHRITIS
     Dosage: 50 MG (PREFILLED SYRINGE) ONCE WEEKLY
     Route: 058
     Dates: start: 20070503, end: 20070510
  2. ENBREL [Suspect]
     Dosage: 50 MG (LYOPHILISED FORMULATION) ONCE WEEKLY
     Route: 058
  3. CODEINE PHOSPHATE/PARACETAMOL [Concomitant]
     Dosage: UNKNOWN
  4. FERROUS SULFATE TAB [Concomitant]
     Route: 048
  5. FOLIC ACID [Concomitant]
     Dosage: 10 MG
     Route: 048
  6. LANSOPRAZOLE [Concomitant]
     Route: 048
  7. PREDNISOLONE [Concomitant]
     Route: 048
  8. MULTI-VITAMINS [Concomitant]
     Dosage: UNKNOWN
  9. DICLOFENAC [Concomitant]
     Route: 048

REACTIONS (5)
  - ANAPHYLACTIC REACTION [None]
  - HEADACHE [None]
  - INCORRECT DOSE ADMINISTERED [None]
  - INJECTION SITE PAIN [None]
  - PYREXIA [None]
